FAERS Safety Report 17351412 (Version 2)
Quarter: 2020Q1

REPORT INFORMATION
  Report Type: Spontaneous
  Country: ES (occurrence: ES)
  Receive Date: 20200130
  Receipt Date: 20200228
  Transmission Date: 20200409
  Serious: Yes (Hospitalization, Other)
  Sender: FDA-Public Use
  Company Number: ES-INDIVIOR LIMITED-INDV-123357-2020

PATIENT
  Age: 49 Year
  Sex: Female

DRUGS (1)
  1. BUPRENORPHINE. [Suspect]
     Active Substance: BUPRENORPHINE
     Indication: DRUG DEPENDENCE
     Dosage: UNK
     Route: 065

REACTIONS (7)
  - Cardiac failure [Recovered/Resolved]
  - Diarrhoea [Unknown]
  - Stress cardiomyopathy [Recovering/Resolving]
  - Hypotension [Recovered/Resolved]
  - Abdominal pain [Unknown]
  - Acute coronary syndrome [Recovered/Resolved]
  - Drug withdrawal syndrome [Recovering/Resolving]
